FAERS Safety Report 5077752-3 (Version None)
Quarter: 2006Q3

REPORT INFORMATION
  Report Type: 
  Country: None (occurrence: None)
  Receive Date: 20060807
  Receipt Date: 20060725
  Transmission Date: 20061208
  Serious: Yes (Death, Hospitalization)
  Sender: FDA-Public Use
  Company Number: CLOF-10290

PATIENT

DRUGS (2)
  1. CLOFARABINE [Suspect]
     Indication: MYELOID LEUKAEMIA
     Dosage: 40 MG/M2 QD X 5 IV
     Route: 042
  2. CYTARABINE [Suspect]
     Indication: MYELOID LEUKAEMIA
     Dosage: 1000 MG/M2 QD X 5 IV
     Route: 042

REACTIONS (2)
  - SEPSIS [None]
  - STEVENS-JOHNSON SYNDROME [None]
